FAERS Safety Report 11298317 (Version 1)
Quarter: 2015Q3

REPORT INFORMATION
  Report Type: Spontaneous
  Country: US (occurrence: US)
  Receive Date: 20150722
  Receipt Date: 20150722
  Transmission Date: 20151125
  Serious: No
  Sender: FDA-Public Use
  Company Number: US-ELI_LILLY_AND_COMPANY-US201108008008

PATIENT
  Sex: Female

DRUGS (2)
  1. EVISTA [Suspect]
     Active Substance: RALOXIFENE HYDROCHLORIDE
     Dosage: UNK
     Dates: start: 201107
  2. QUININE [Concomitant]
     Active Substance: QUININE
     Indication: MUSCLE SPASMS

REACTIONS (2)
  - Muscle spasms [Unknown]
  - Bone pain [Not Recovered/Not Resolved]
